FAERS Safety Report 8893414 (Version 1)
Quarter: 2012Q4

REPORT INFORMATION
  Report Type: 
  Country: US (occurrence: US)
  Receive Date: 20121107
  Receipt Date: 20121107
  Transmission Date: 20130627
  Serious: Yes (Other)
  Sender: FDA-Public Use
  Company Number: US-AMGEN-USASP2011053368

PATIENT
  Age: 11 Year
  Sex: Female

DRUGS (8)
  1. ENBREL [Suspect]
     Indication: JUVENILE ARTHRITIS
     Dosage: 25 mg, qwk
     Route: 058
     Dates: start: 20110907, end: 20111005
  2. CALCIUM [Concomitant]
  3. CLARITIN [Concomitant]
  4. FORADIL [Concomitant]
  5. IBUPROFEN [Concomitant]
  6. MULTIVITAMINS [Concomitant]
  7. PREDNISONE [Concomitant]
  8. PULMICORT [Concomitant]

REACTIONS (1)
  - Thrombocytopenia [Not Recovered/Not Resolved]
